FAERS Safety Report 7668142-5 (Version None)
Quarter: 2011Q3

REPORT INFORMATION
  Report Type: 
  Country: None (occurrence: None)
  Receive Date: 20110802
  Receipt Date: 20110714
  Transmission Date: 20111222
  Serious: Yes (Disabling, Other)
  Sender: FDA-Public Use
  Company Number: 2011SP035140

PATIENT
  Age: 53 Year
  Sex: Female

DRUGS (2)
  1. PEGINTERFERON ALFA-2B [Suspect]
     Indication: HEPATITIS C
     Dosage: 120 MCG, SC
     Route: 058
     Dates: start: 20101215
  2. RIBAVIRIN [Suspect]
     Indication: HEPATITIS C
     Dates: start: 20101215

REACTIONS (8)
  - MALAISE [None]
  - INSOMNIA [None]
  - FATIGUE [None]
  - DYSPNOEA [None]
  - APHAGIA [None]
  - IMPAIRED DRIVING ABILITY [None]
  - MIGRAINE [None]
  - HAEMATEMESIS [None]
